FAERS Safety Report 4723154-6 (Version None)
Quarter: 2005Q3

REPORT INFORMATION
  Report Type: 
  Country: None (occurrence: None)
  Receive Date: 20050719
  Receipt Date: 20040722
  Transmission Date: 20060218
  Serious: Yes (Other)
  Sender: FDA-Public Use
  Company Number: 2004225525US

PATIENT
  Age: 38 Year
  Sex: Male
  Weight: 83.9 kg

DRUGS (3)
  1. CELEBREX [Suspect]
     Indication: ARTHRITIS
     Dosage: 200 MG, UNK, ORAL
     Route: 048
     Dates: start: 20040721, end: 20040722
  2. ALEVE [Concomitant]
  3. XANAX [Concomitant]

REACTIONS (8)
  - BLOOD PRESSURE INCREASED [None]
  - DYSPNOEA [None]
  - EYE SWELLING [None]
  - HYPERSENSITIVITY [None]
  - SKIN BURNING SENSATION [None]
  - SKIN TIGHTNESS [None]
  - SOMNOLENCE [None]
  - SWELLING FACE [None]
